FAERS Safety Report 5968837-5 (Version None)
Quarter: 2008Q4

REPORT INFORMATION
  Report Type: 
  Country: None (occurrence: None)
  Receive Date: 20081126
  Receipt Date: 20081114
  Transmission Date: 20090506
  Serious: Yes (Other)
  Sender: FDA-Public Use
  Company Number: AU-ELI_LILLY_AND_COMPANY-AU200811003149

PATIENT
  Sex: Female

DRUGS (1)
  1. HUMATROPE [Suspect]
     Dosage: 0.7 MG, WEEKLY (1/W)
     Route: 065
     Dates: start: 20080528

REACTIONS (2)
  - DIABETES MELLITUS [None]
  - NASOPHARYNGITIS [None]
